FAERS Safety Report 9186420 (Version 2)
Quarter: 2013Q2

REPORT INFORMATION
  Report Type: Spontaneous
  Country: US (occurrence: None)
  Receive Date: 20130321
  Receipt Date: 20130408
  Transmission Date: 20140414
  Serious: Yes (Hospitalization)
  Sender: FDA-Public Use
  Company Number: UTC-029274

PATIENT
  Age: 34 Year
  Sex: Female
  Weight: 59 kg

DRUGS (7)
  1. REMODULIN [Suspect]
     Indication: PULMONARY ARTERIAL HYPERTENSION
     Route: 041
     Dates: start: 20120914
  2. ADCIRCA (TADALAFIL) [Concomitant]
  3. ACETAMINOPHEN (PARACETAMOL) [Concomitant]
  4. HYDROCORTISONE CREAM (HYDROCORTISONE) (CREAM) [Concomitant]
  5. JANTOVEN (WARFARIN SODIUM) [Concomitant]
  6. LETAIRIS (AMBRISENTAN) (TABLET) (AMBRISENTAN) [Concomitant]
  7. LORATIDINE [Concomitant]

REACTIONS (13)
  - Implant site pain [None]
  - Implant site swelling [None]
  - Implant site erythema [None]
  - Chest pain [None]
  - Flushing [None]
  - Abdominal pain upper [None]
  - Nausea [None]
  - Tachycardia [None]
  - Infusion site warmth [None]
  - Catheter site pain [None]
  - Immediate post-injection reaction [None]
  - Implant site effusion [None]
  - Extravasation [None]
